FAERS Safety Report 14035097 (Version 3)
Quarter: 2017Q4

REPORT INFORMATION
  Report Type: Spontaneous
  Country: US (occurrence: US)
  Receive Date: 20171003
  Receipt Date: 20171113
  Transmission Date: 20180321
  Serious: Yes (Life-Threatening, Hospitalization, Other)
  Sender: FDA-Public Use
  Company Number: US-AMGEN-USASP2017148957

PATIENT
  Age: 64 Year
  Sex: Female

DRUGS (1)
  1. ARANESP [Suspect]
     Active Substance: DARBEPOETIN ALFA
     Indication: ANAEMIA
     Dosage: 100 MUG, QMO
     Route: 058
     Dates: start: 2009

REACTIONS (10)
  - Coronary artery occlusion [Unknown]
  - Fatigue [Unknown]
  - Diabetes mellitus [Unknown]
  - Cardiac disorder [Unknown]
  - Hepatic failure [Unknown]
  - Dyspnoea [Recovered/Resolved]
  - Cardiac failure congestive [Unknown]
  - Hip fracture [Unknown]
  - Myocardial infarction [Unknown]
  - Malaise [Unknown]

NARRATIVE: CASE EVENT DATE: 2013
